FAERS Safety Report 13433370 (Version 1)
Quarter: 2017Q2

REPORT INFORMATION
  Report Type: Spontaneous
  Country: GB (occurrence: GB)
  Receive Date: 20170412
  Receipt Date: 20170412
  Transmission Date: 20170830
  Serious: Yes (Other)
  Sender: FDA-Public Use
  Company Number: GB-LABORATOIRE HRA PHARMA-1065315

PATIENT
  Sex: Female

DRUGS (1)
  1. ELLA [Suspect]
     Active Substance: ULIPRISTAL ACETATE
     Route: 048
     Dates: start: 20170215, end: 20170215

REACTIONS (5)
  - Exposure during pregnancy [None]
  - Haemorrhage in pregnancy [None]
  - Breast discomfort [None]
  - Abdominal pain [None]
  - Back pain [None]

NARRATIVE: CASE EVENT DATE: 20170216
